FAERS Safety Report 8406137-4 (Version None)
Quarter: 2012Q2

REPORT INFORMATION
  Report Type: 
  Country: None (occurrence: None)
  Receive Date: 20120323
  Receipt Date: 20110107
  Transmission Date: 20120825
  Serious: Yes (Hospitalization)
  Sender: FDA-Public Use
  Company Number: 163-21880-11010895

PATIENT
  Age: 74 Year
  Sex: Female

DRUGS (3)
  1. REVLIMID [Suspect]
     Indication: MULTIPLE MYELOMA
     Dosage: 10 MG, DAILY FOR 21 DAYS, PO 10 MG, DAILY FOR 21 DAYS, PO 10 MG, DAILY FOR 21 DAYS, PO
     Route: 048
     Dates: start: 20090614, end: 20100810
  2. REVLIMID [Suspect]
     Indication: MULTIPLE MYELOMA
     Dosage: 10 MG, DAILY FOR 21 DAYS, PO 10 MG, DAILY FOR 21 DAYS, PO 10 MG, DAILY FOR 21 DAYS, PO
     Route: 048
     Dates: start: 20101102
  3. REVLIMID [Suspect]
     Indication: MULTIPLE MYELOMA
     Dosage: 10 MG, DAILY FOR 21 DAYS, PO 10 MG, DAILY FOR 21 DAYS, PO 10 MG, DAILY FOR 21 DAYS, PO
     Route: 048
     Dates: start: 20080123, end: 20090428

REACTIONS (3)
  - MULTIPLE MYELOMA [None]
  - PAIN IN EXTREMITY [None]
  - DISEASE PROGRESSION [None]
